FAERS Safety Report 12959170 (Version 1)
Quarter: 2016Q4

REPORT INFORMATION
  Report Type: Spontaneous
  Country: US (occurrence: US)
  Receive Date: 20161118
  Receipt Date: 20161118
  Transmission Date: 20170207
  Serious: Yes (Hospitalization)
  Sender: FDA-Public Use
  Company Number: None

PATIENT
  Age: 41 Year
  Sex: Female
  Weight: 81 kg

DRUGS (3)
  1. CARBOPLATIN. [Suspect]
     Active Substance: CARBOPLATIN
     Dates: end: 20161103
  2. TAXOL [Suspect]
     Active Substance: PACLITAXEL
     Dates: end: 20161103
  3. CISPLATIN. [Suspect]
     Active Substance: CISPLATIN
     Dates: end: 20160822

REACTIONS (8)
  - Hypersensitivity [None]
  - Rhinorrhoea [None]
  - Haemoglobin decreased [None]
  - Oropharyngeal pain [None]
  - Pyrexia [None]
  - Blood magnesium decreased [None]
  - Neutrophil count decreased [None]
  - Nausea [None]

NARRATIVE: CASE EVENT DATE: 20161115
